FAERS Safety Report 5493524-X (Version None)
Quarter: 2007Q4

REPORT INFORMATION
  Report Type: 
  Country: None (occurrence: None)
  Receive Date: 20071023
  Receipt Date: 20071010
  Transmission Date: 20080405
  Serious: Yes (Other)
  Sender: FDA-Public Use
  Company Number: US-SHR-US-2007-036710

PATIENT
  Age: 45 Year
  Sex: Female

DRUGS (7)
  1. BETASERON [Suspect]
     Dosage: 8 MIU, EVERY 2D
     Route: 058
     Dates: start: 20010425
  2. NEURONTIN [Concomitant]
  3. LYRICA [Concomitant]
  4. NORVASC [Concomitant]
  5. NAPROXEN [Concomitant]
  6. VICODIN [Concomitant]
  7. GLYBURIDE [Concomitant]

REACTIONS (10)
  - INJECTION SITE BRUISING [None]
  - INJECTION SITE ERYTHEMA [None]
  - INJECTION SITE MASS [None]
  - INJECTION SITE RASH [None]
  - INJECTION SITE URTICARIA [None]
  - MULTIPLE SCLEROSIS [None]
  - PRURITUS GENERALISED [None]
  - SKIN ULCER [None]
  - STAPHYLOCOCCAL INFECTION [None]
  - WOUND INFECTION [None]
